FAERS Safety Report 4415485-4 (Version None)
Quarter: 2004Q3

REPORT INFORMATION
  Report Type: 
  Country: None (occurrence: None)
  Receive Date: 20040730
  Receipt Date: 20040721
  Transmission Date: 20050211
  Serious: Yes (Other)
  Sender: FDA-Public Use
  Company Number: 2004224887US

PATIENT
  Age: 58 Year
  Sex: Female

DRUGS (3)
  1. PROVERA [Suspect]
     Dates: start: 19981230, end: 19990201
  2. PREMARIN [Suspect]
     Dates: start: 19970227, end: 19990728
  3. PREMPRO [Suspect]
     Dates: start: 19990728, end: 20010621

REACTIONS (1)
  - BREAST CANCER FEMALE [None]
